FAERS Safety Report 23028296 (Version 2)
Quarter: 2023Q4

REPORT INFORMATION
  Report Type: Spontaneous
  Country: US (occurrence: US)
  Receive Date: 20231004
  Receipt Date: 20231218
  Transmission Date: 20240109
  Serious: Yes (Death, Other)
  Sender: FDA-Public Use
  Company Number: US-PFIZER INC-PV202300161112

PATIENT
  Age: 80 Year
  Sex: Male
  Weight: 98.866 kg

DRUGS (2)
  1. VYNDAMAX [Suspect]
     Active Substance: TAFAMIDIS
     Indication: Amyloidosis
     Dosage: 61 MG, 1X/DAY
     Dates: start: 202303
  2. VYNDAMAX [Suspect]
     Active Substance: TAFAMIDIS
     Indication: Cardiac amyloidosis

REACTIONS (6)
  - Amyloidosis [Fatal]
  - Disease progression [Fatal]
  - Cardiac amyloidosis [Fatal]
  - Disease progression [Fatal]
  - Acute kidney injury [Fatal]
  - Diastolic dysfunction [Fatal]
